FAERS Safety Report 5714281-5 (Version None)
Quarter: 2008Q2

REPORT INFORMATION
  Report Type: 
  Country: None (occurrence: None)
  Receive Date: 20080421
  Receipt Date: 20080403
  Transmission Date: 20081010
  Serious: Yes (Death, Life-Threatening, Hospitalization)
  Sender: FDA-Public Use
  Company Number: 8031473

PATIENT
  Sex: Female

DRUGS (2)
  1. KEPPRA [Suspect]
  2. PHENYTOIN [Concomitant]

REACTIONS (1)
  - ACUTE HEPATIC FAILURE [None]
